FAERS Safety Report 5268731-1 (Version None)
Quarter: 2007Q1

REPORT INFORMATION
  Report Type: 
  Country: None (occurrence: None)
  Receive Date: 20070313
  Receipt Date: 20070227
  Transmission Date: 20070707
  Serious: Yes (Life-Threatening)
  Sender: FDA-Public Use
  Company Number: 2007PE003560

PATIENT
  Age: 61 Year
  Sex: Female

DRUGS (3)
  1. ONICIT(PALONOSETRON HYDROCHLORIDE) INJECTION, 0.25MG/5ML [Suspect]
     Indication: PROPHYLAXIS OF NAUSEA AND VOMITING
     Dosage: 0.25 MG, SINGLE, INTRAVENOUS
     Route: 042
     Dates: start: 20070221, end: 20070221
  2. CISPLATIN [Concomitant]
  3. GEMCITABINE [Concomitant]

REACTIONS (1)
  - BRONCHOSPASM [None]
